FAERS Safety Report 7631272-8 (Version None)
Quarter: 2011Q3

REPORT INFORMATION
  Report Type: 
  Country: None (occurrence: None)
  Receive Date: 20110725
  Receipt Date: 20110721
  Transmission Date: 20111222
  Serious: Yes (Hospitalization, Other)
  Sender: FDA-Public Use
  Company Number: AU-ELI_LILLY_AND_COMPANY-AU201107005503

PATIENT
  Sex: Female

DRUGS (2)
  1. BYETTA [Suspect]
     Dosage: 5 DF, BID
     Dates: start: 20110415, end: 20110501
  2. BYETTA [Suspect]
     Dosage: 10 DF, BID
     Dates: start: 20110515

REACTIONS (3)
  - LIPASE INCREASED [None]
  - PANCREATITIS [None]
  - ABDOMINAL DISCOMFORT [None]
